FAERS Safety Report 7726386-8 (Version None)
Quarter: 2011Q3

REPORT INFORMATION
  Report Type: 
  Country: None (occurrence: None)
  Receive Date: 20110902
  Receipt Date: 20110823
  Transmission Date: 20111222
  Serious: Yes (Other)
  Sender: FDA-Public Use
  Company Number: BR-PFIZER INC-2009295276

PATIENT
  Age: 45 Year
  Sex: Male
  Weight: 79.6 kg

DRUGS (60)
  1. VORICONAZOLE [Suspect]
     Indication: ASPERGILLOSIS
     Dosage: 475 MG, 1X/DAY
     Route: 042
     Dates: start: 20091103, end: 20091104
  2. VORICONAZOLE [Suspect]
     Dosage: 320 MG, SINGLE
     Route: 042
     Dates: start: 20091104, end: 20091104
  3. ONDANSETRON [Concomitant]
     Dosage: UNK
     Route: 042
     Dates: start: 20091014
  4. HYDROCORTISONE [Concomitant]
     Dosage: UNK
     Route: 042
     Dates: start: 20091027, end: 20091101
  5. FUROSEMIDE [Concomitant]
     Dosage: UNK
     Route: 042
     Dates: start: 20091107
  6. HEXAMIDINE [Concomitant]
     Dosage: UNK
     Dates: start: 20091027, end: 20091101
  7. METOCLOPRAMIDE [Concomitant]
     Dosage: UNK
     Route: 042
     Dates: start: 20091104
  8. NYSTATIN [Concomitant]
     Dosage: UNK
     Route: 048
     Dates: start: 20091014, end: 20091101
  9. FUROSEMIDE [Concomitant]
     Dosage: UNK
     Route: 042
     Dates: start: 20091104, end: 20091104
  10. SULFAMETHOXAZOLE AND TRIMETHOPRIM [Concomitant]
     Dosage: UNK
     Route: 048
     Dates: start: 20091022
  11. ZOLPIDEM [Concomitant]
     Dosage: UNK
     Route: 048
     Dates: start: 20091008, end: 20091104
  12. ONDANSETRON [Concomitant]
     Dosage: UNK
     Route: 042
     Dates: start: 20091104
  13. MINERAL OIL [Concomitant]
     Dosage: UNK
     Route: 048
     Dates: start: 20091019, end: 20091028
  14. HYDROCORTISONE [Concomitant]
     Dosage: UNK
     Route: 042
     Dates: start: 20091019, end: 20091026
  15. PIPERACILLIN AND TAZOBACTAM [Concomitant]
     Dosage: UNK
     Route: 042
     Dates: start: 20091026, end: 20091028
  16. HYOSCINE [Concomitant]
     Dosage: UNK
     Route: 042
     Dates: start: 20091027, end: 20091101
  17. FILGRASTIM [Concomitant]
     Dosage: UNK
     Route: 042
     Dates: start: 20091027, end: 20091101
  18. MAGNESIUM W/POTASSIUM [Concomitant]
     Dosage: UNK
     Route: 042
     Dates: start: 20091031, end: 20091101
  19. MAGNESIUM W/POTASSIUM [Concomitant]
     Dosage: UNK
     Route: 042
     Dates: start: 20091101, end: 20091103
  20. AMPHOTERICINE B, LIPOSOME [Concomitant]
     Dosage: UNK
     Route: 042
     Dates: start: 20091031, end: 20091101
  21. FLUNITRAZEPAM [Concomitant]
     Dosage: UNK
     Route: 048
     Dates: start: 20091104, end: 20091105
  22. ANIDULAFUNGIN [Suspect]
     Indication: ASPERGILLOSIS
     Dosage: UNK
     Route: 042
     Dates: start: 20091103, end: 20091108
  23. VORICONAZOLE [Suspect]
     Dosage: 300 MG, SINGLE
     Route: 042
     Dates: start: 20091108, end: 20091108
  24. PIPERACILLIN AND TAZOBACTAM [Concomitant]
     Dosage: UNK
     Route: 042
     Dates: start: 20091022, end: 20091026
  25. DEXCHLORPHENIRAMINE [Concomitant]
     Dosage: UNK
     Route: 048
     Dates: start: 20091026, end: 20091101
  26. TETRACAINE [Concomitant]
     Dosage: UNK
     Route: 042
     Dates: start: 20091027, end: 20091101
  27. FLUNITRAZEPAM [Concomitant]
     Dosage: UNK
     Route: 048
     Dates: start: 20091105
  28. DIMENHYDRINATE - SLOW RELEASE ^RATIOPHARM^ [Concomitant]
     Dosage: UNK
     Route: 042
     Dates: start: 20091014, end: 20091101
  29. LOPERAMIDE [Concomitant]
     Dosage: UNK
     Route: 048
     Dates: start: 20091026, end: 20091031
  30. FUROSEMIDE [Concomitant]
     Dosage: UNK
     Route: 042
     Dates: start: 20091028, end: 20091031
  31. ACYCLOVIR [Concomitant]
     Dosage: UNK
     Route: 048
     Dates: start: 20091022, end: 20091026
  32. ACYCLOVIR [Concomitant]
     Dosage: UNK
     Route: 048
     Dates: start: 20091101
  33. POTASSIUM CHLORIDE [Concomitant]
     Dosage: UNK
     Route: 042
     Dates: start: 20091106
  34. LOSARTAN [Concomitant]
     Dosage: UNK
     Route: 048
     Dates: start: 20091107, end: 20091130
  35. OMEPRAZOLE [Concomitant]
     Dosage: UNK
     Route: 048
     Dates: start: 20091008
  36. FLUCONAZOLE [Concomitant]
     Dosage: UNK
     Route: 042
     Dates: start: 20091029, end: 20091031
  37. MAGNESIUM SULFATE [Concomitant]
     Dosage: UNK
     Route: 042
     Dates: start: 20091107
  38. ALBUTEROL SULFATE AND IPRATROPIUM BROMIDE [Concomitant]
     Dosage: UNK
     Route: 045
     Dates: start: 20091109
  39. ENALAPRIL [Concomitant]
     Dosage: UNK
     Route: 048
     Dates: start: 20091112, end: 20091130
  40. VORICONAZOLE [Suspect]
     Dosage: 300 MG, 2X/DAY
     Route: 042
     Dates: start: 20091105, end: 20091107
  41. DIPYRONE TAB [Concomitant]
     Dosage: UNK
     Route: 048
     Dates: start: 20091008, end: 20091026
  42. DIPYRONE TAB [Concomitant]
     Dosage: UNK
     Route: 042
     Dates: start: 20091022
  43. DEXPANTHENOL [Concomitant]
     Dosage: UNK
     Route: 061
     Dates: start: 20091014, end: 20091104
  44. LOPERAMIDE [Concomitant]
     Dosage: UNK
     Route: 048
     Dates: start: 20091019, end: 20091027
  45. FUROSEMIDE [Concomitant]
     Dosage: UNK
     Route: 042
     Dates: start: 20091105, end: 20091107
  46. ACYCLOVIR [Concomitant]
     Dosage: UNK
     Route: 042
     Dates: start: 20091026, end: 20091027
  47. ACYCLOVIR [Concomitant]
     Dosage: UNK
     Route: 042
     Dates: start: 20091027, end: 20091101
  48. HYOSCINE [Concomitant]
     Dosage: UNK
     Route: 042
     Dates: start: 20091101
  49. PARACETAMOL [Concomitant]
     Dosage: UNK
     Route: 048
     Dates: start: 20091031, end: 20091101
  50. POTASSIUM CHLORIDE [Concomitant]
     Dosage: UNK
     Route: 048
     Dates: start: 20091102, end: 20091104
  51. METOCLOPRAMIDE [Concomitant]
     Dosage: UNK
     Dates: start: 20091008, end: 20091031
  52. TRAMADOL [Concomitant]
     Dosage: UNK
     Route: 048
     Dates: start: 20091008, end: 20091101
  53. BENZYDAMINE [Concomitant]
     Dosage: UNK
     Route: 061
     Dates: start: 20091014, end: 20091104
  54. GLUCOSE/ MAGNESIUM CL. HEXAHYDRATE/POTASSIUM CL./SODIUM CL. [Concomitant]
     Dosage: UNK
     Route: 042
     Dates: start: 20091019, end: 20091031
  55. IMIPENEM [Concomitant]
     Dosage: UNK
     Route: 042
     Dates: start: 20091027, end: 20091105
  56. VANCOMYCIN [Concomitant]
     Dosage: UNK
     Route: 042
     Dates: start: 20091027, end: 20091101
  57. METRONIDAZOLE [Concomitant]
     Dosage: UNK
     Route: 048
     Dates: start: 20091030, end: 20091103
  58. AMPHOTERICIN B [Concomitant]
     Dosage: UNK
     Route: 042
     Dates: start: 20091031, end: 20091031
  59. PROPRANOLOL [Concomitant]
     Dosage: UNK
     Route: 048
     Dates: start: 20091105, end: 20091130
  60. CLONIDINE [Concomitant]
     Dosage: UNK
     Route: 048
     Dates: start: 20091107

REACTIONS (1)
  - NEPHRITIC SYNDROME [None]
